FAERS Safety Report 5113981-8 (Version None)
Quarter: 2006Q3

REPORT INFORMATION
  Report Type: 
  Country: None (occurrence: None)
  Receive Date: 20060921
  Receipt Date: 20060912
  Transmission Date: 20061208
  Serious: Yes (Hospitalization, Other)
  Sender: FDA-Public Use
  Company Number: 2006BI011830

PATIENT
  Age: 56 Year
  Sex: Male

DRUGS (20)
  1. AVONEX [Suspect]
     Indication: MULTIPLE SCLEROSIS
     Dosage: 30 UG; QW; IM
     Route: 030
     Dates: start: 20050505, end: 20050601
  2. AVONEX [Suspect]
     Indication: MULTIPLE SCLEROSIS
     Dosage: 30 UG; QW; IM
     Route: 030
     Dates: start: 20050601
  3. ADVAIR DISKUS 100/50 [Concomitant]
  4. SYNTHROID [Concomitant]
  5. DYAZIDE [Concomitant]
  6. ALBUTEROL [Concomitant]
  7. SINGULAIR [Concomitant]
  8. LORCET-HD [Concomitant]
  9. DEPAKOTE [Concomitant]
  10. NORTRIPTYLINE HCL [Concomitant]
  11. PRIMIDONE [Concomitant]
  12. TRAZODONE HCL [Concomitant]
  13. SEROQUEL [Concomitant]
  14. FLOMAX [Concomitant]
  15. HYDROXYZINE [Concomitant]
  16. NAPROSYN [Concomitant]
  17. LORAZEPAM [Concomitant]
  18. ATENOLOL [Concomitant]
  19. LEVAQUIN [Concomitant]
  20. FIORECET [Concomitant]

REACTIONS (3)
  - BACK DISORDER [None]
  - CONNECTIVE TISSUE DISORDER [None]
  - INTERVERTEBRAL DISC PROTRUSION [None]
